FAERS Safety Report 19753699 (Version 1)
Quarter: 2021Q3

REPORT INFORMATION
  Report Type: Spontaneous
  Country: US (occurrence: US)
  Receive Date: 20210825
  Receipt Date: 20210825
  Transmission Date: 20211014
  Serious: Yes (Hospitalization)
  Sender: FDA-Public Use
  Company Number: None

PATIENT
  Age: 25 Year
  Sex: Female

DRUGS (1)
  1. HUMIRA [Suspect]
     Active Substance: ADALIMUMAB
     Dosage: OTHER DOSE:40;OTHER FREQUENCY:OTHER ;?
     Route: 058
     Dates: start: 2020

REACTIONS (1)
  - Appendicitis [None]

NARRATIVE: CASE EVENT DATE: 20210813
